FAERS Safety Report 8220604-8 (Version None)
Quarter: 2012Q1

REPORT INFORMATION
  Report Type: 
  Country: None (occurrence: None)
  Receive Date: 20120320
  Receipt Date: 20120312
  Transmission Date: 20120608
  Serious: No
  Sender: FDA-Public Use
  Company Number: US-ENDO PHARMACEUTICALS INC.-METO20120064

PATIENT
  Sex: Female

DRUGS (3)
  1. METOCLOPRAMIDE HCL [Suspect]
     Indication: PRODUCT USED FOR UNKNOWN INDICATION
     Dosage: UNKNOWN
     Route: 048
     Dates: start: 19880101
  2. METOCLOPRAMIDE HCL [Suspect]
     Dosage: UNKNOWN
     Dates: start: 20050101, end: 20100101
  3. METOCLOPRAMIDE HCL [Suspect]
     Dosage: UNKNOWN
     Route: 048
     Dates: start: 19910101, end: 19950101

REACTIONS (4)
  - PARKINSON'S DISEASE [None]
  - PARKINSONISM [None]
  - INCORRECT DRUG ADMINISTRATION DURATION [None]
  - TARDIVE DYSKINESIA [None]
